FAERS Safety Report 10200651 (Version 2)
Quarter: 2014Q2

REPORT INFORMATION
  Report Type: Spontaneous
  Country: JP (occurrence: JP)
  Receive Date: 20140528
  Receipt Date: 20140616
  Transmission Date: 20141212
  Serious: Yes (Other)
  Sender: FDA-Public Use
  Company Number: JP-ROCHE-1408488

PATIENT
  Age: 76 Year
  Sex: Female
  Weight: 38 kg

DRUGS (10)
  1. ROCEPHIN [Suspect]
     Indication: PNEUMONIA BACTERIAL
     Dosage: LAST DOSE PRIOR TO SERIOUS ADVERSE EVENT: 10/MAY/2014
     Route: 042
     Dates: start: 20140507
  2. SIGMART [Concomitant]
     Indication: ANGINA PECTORIS
     Route: 048
  3. BIOFERMIN R [Concomitant]
     Indication: PROPHYLAXIS
     Route: 048
     Dates: start: 20140508
  4. AMBROXOL HYDROCHLORIDE [Concomitant]
     Indication: PNEUMONIA BACTERIAL
     Route: 048
     Dates: start: 20140508
  5. HOKUNALIN [Concomitant]
     Indication: PNEUMONIA BACTERIAL
     Dosage: REPORTED AS HOKUNALIN:TAPE
     Route: 062
     Dates: start: 20140509
  6. LENDORMIN [Concomitant]
     Route: 048
  7. LOXONIN [Concomitant]
     Indication: PNEUMONIA BACTERIAL
     Route: 048
     Dates: start: 2014
  8. TAZOBACTAM SODIUM [Concomitant]
     Route: 065
     Dates: start: 20140510
  9. PIPERACILLIN SODIUM [Concomitant]
     Route: 065
     Dates: start: 20140510
  10. ZITHROMAX [Concomitant]
     Route: 065
     Dates: start: 20140510

REACTIONS (1)
  - Pneumonia [Recovering/Resolving]
